FAERS Safety Report 20337344 (Version 3)
Quarter: 2024Q4

REPORT INFORMATION
  Report Type: Spontaneous
  Country: US (occurrence: US)
  Receive Date: 20220114
  Receipt Date: 20241121
  Transmission Date: 20250114
  Serious: Yes (Other)
  Sender: SANOFI AVENTIS
  Company Number: US-SA-SAC20220105000905

PATIENT
  Age: 63 Year
  Sex: Female
  Weight: 65.91 kg

DRUGS (8)
  1. DUPIXENT [Suspect]
     Active Substance: DUPILUMAB
     Indication: Dermatitis atopic
     Dosage: 300 MG, QOW
     Route: 058
     Dates: start: 201912
  2. MOXIFLOXACIN [Concomitant]
     Active Substance: MOXIFLOXACIN
     Dosage: UNK
  3. PROGESTERONE [Concomitant]
     Active Substance: PROGESTERONE
     Dosage: UNK
  4. NP THYROID [Concomitant]
     Active Substance: LEVOTHYROXINE\LIOTHYRONINE
     Dosage: UNK
  5. TRAZODONE [Concomitant]
     Active Substance: TRAZODONE HYDROCHLORIDE
     Dosage: UNK
  6. RETIN-A [Concomitant]
     Active Substance: TRETINOIN
     Dosage: UNK
  7. OMEGA-3-ACID ETHYL ESTERS [Concomitant]
     Active Substance: OMEGA-3-ACID ETHYL ESTERS
     Dosage: UNK
  8. BUPROPION [Concomitant]
     Active Substance: BUPROPION
     Dosage: UNK

REACTIONS (3)
  - Pneumonia [Recovering/Resolving]
  - Dermatitis atopic [Unknown]
  - Inappropriate schedule of product administration [Unknown]
